FAERS Safety Report 8778668 (Version 3)
Quarter: 2012Q4

REPORT INFORMATION
  Report Type: 
  Country: JP (occurrence: JP)
  Receive Date: 20120912
  Receipt Date: 20121119
  Transmission Date: 20130627
  Serious: Yes (Hospitalization, Disabling)
  Sender: FDA-Public Use
  Company Number: JP-BRISTOL-MYERS SQUIBB COMPANY-16938383

PATIENT
  Age: 70 Year
  Sex: Female

DRUGS (2)
  1. ORENCIA FOR INJ 250 MG/VIAL [Suspect]
     Indication: RHEUMATOID ARTHRITIS
     Dosage: 10-JUL-2012, the last dose of Orencia was administered
     Dates: start: 20120228
  2. METHOTREXATE [Concomitant]

REACTIONS (1)
  - Myelopathy [Recovering/Resolving]
